FAERS Safety Report 19443448 (Version 3)
Quarter: 2023Q1

REPORT INFORMATION
  Report Type: Spontaneous
  Country: ES (occurrence: ES)
  Receive Date: 20210621
  Receipt Date: 20230329
  Transmission Date: 20230418
  Serious: Yes (Life-Threatening, Hospitalization, Other)
  Sender: FDA-Public Use
  Company Number: NVSC2021ES137887

PATIENT
  Age: 5 Year
  Sex: Female
  Weight: 22.5 kg

DRUGS (35)
  1. REMIFENTANIL HYDROCHLORIDE [Suspect]
     Active Substance: REMIFENTANIL HYDROCHLORIDE
     Indication: Withdrawal syndrome
     Dosage: 5 MG, PRN
     Route: 065
     Dates: start: 20210408, end: 20210411
  2. FENTANYL [Suspect]
     Active Substance: FENTANYL
     Indication: Product used for unknown indication
     Dosage: 3.5 ?G/KG, QH (1X/HOUR)
     Route: 065
     Dates: start: 20210329, end: 20210402
  3. FENTANYL [Suspect]
     Active Substance: FENTANYL
     Dosage: 30 UG, PRN
     Route: 065
     Dates: start: 20210329, end: 20210402
  4. FENTANYL [Suspect]
     Active Substance: FENTANYL
     Dosage: 25 UG, PRN
     Route: 065
     Dates: start: 20210403
  5. FENTANYL [Suspect]
     Active Substance: FENTANYL
     Dosage: 2.5 ?G/KG, QH (1X/HOUR)
     Route: 065
     Dates: start: 20210403, end: 20210405
  6. PROPOFOL [Suspect]
     Active Substance: PROPOFOL
     Indication: Product used for unknown indication
     Dosage: 20 MG, PRN
     Route: 065
     Dates: start: 20210401, end: 20210403
  7. KETAMINE [Suspect]
     Active Substance: KETAMINE
     Indication: Sedation
     Dosage: 1.3 ?G/KG, QH (1X/HOUR)
     Route: 065
     Dates: start: 20210330
  8. KETAMINE [Suspect]
     Active Substance: KETAMINE
     Dosage: 25 MG, PRN
     Route: 065
     Dates: start: 20210402, end: 20210403
  9. KETAMINE [Suspect]
     Active Substance: KETAMINE
     Dosage: 3.8 MG/KG, QH (1X/HOUR)
     Route: 065
     Dates: start: 20210402, end: 20210403
  10. SEVOFLURANE [Suspect]
     Active Substance: SEVOFLURANE
     Indication: Sedation
     Dosage: 0.2 ML, PRN
     Route: 048
     Dates: start: 20210403
  11. SEVOFLURANE [Suspect]
     Active Substance: SEVOFLURANE
     Dosage: 10 ML, QH (1X/HOUR)
     Route: 048
     Dates: start: 20210403, end: 20210407
  12. SEVOFLURANE [Suspect]
     Active Substance: SEVOFLURANE
     Dosage: 0.15 ?G/KG, CONTINUOUS/MIN
     Route: 048
     Dates: start: 20210405, end: 20210407
  13. MIDAZOLAM [Suspect]
     Active Substance: MIDAZOLAM
     Indication: Sedation
     Dosage: 4.1 MG/KG, QH (1X/HOUR)
     Route: 065
     Dates: start: 20210329, end: 20210404
  14. MIDAZOLAM [Suspect]
     Active Substance: MIDAZOLAM
     Dosage: 0.34 MG/KG, QH (1X/HOUR)
     Route: 065
     Dates: start: 20210402, end: 20210403
  15. MIDAZOLAM [Suspect]
     Active Substance: MIDAZOLAM
     Dosage: 2.5 MG, PRN
     Route: 065
     Dates: start: 20210402, end: 20210403
  16. DEXMEDETOMIDINE [Suspect]
     Active Substance: DEXMEDETOMIDINE
     Indication: Product used for unknown indication
     Dosage: UNK
     Route: 065
  17. MOVANTIK [Suspect]
     Active Substance: NALOXEGOL OXALATE
     Indication: Product used for unknown indication
     Dosage: UNK
     Route: 065
  18. MOVANTIK [Suspect]
     Active Substance: NALOXEGOL OXALATE
     Dosage: UNK
     Route: 065
  19. CLORAZEPATE DIPOTASSIUM [Suspect]
     Active Substance: CLORAZEPATE DIPOTASSIUM
     Indication: Product used for unknown indication
     Dosage: UNK
     Route: 065
  20. RANITIDINE [Concomitant]
     Active Substance: RANITIDINE
     Indication: Product used for unknown indication
     Dosage: UNK
     Route: 065
  21. BUDESONIDE [Concomitant]
     Active Substance: BUDESONIDE
     Indication: Upper airway obstruction
     Dosage: 2 MG, ONCE/SINGLE
     Route: 065
     Dates: start: 20210403, end: 20210403
  22. POLYETHYLENE GLYCOLS [Concomitant]
     Active Substance: POLYETHYLENE GLYCOLS
     Indication: Constipation
     Dosage: 6.9 G, TID (3X/DAY)
     Route: 065
     Dates: start: 20210408
  23. AMOXICILLIN\CLAVULANIC ACID [Concomitant]
     Active Substance: AMOXICILLIN\CLAVULANIC ACID
     Indication: Prophylaxis
     Dosage: 575 MG, TID (3X/DAY)
     Route: 065
     Dates: start: 20210330, end: 20210403
  24. AMOXICILLIN\CLAVULANIC ACID [Concomitant]
     Active Substance: AMOXICILLIN\CLAVULANIC ACID
     Dosage: 600 MG, QID (4X/DAY)
     Route: 065
     Dates: start: 20210403
  25. FUROSEMIDE [Concomitant]
     Active Substance: FUROSEMIDE
     Indication: Hypervolaemia
     Dosage: 5 MG, TID (3X/DAY)
     Route: 065
     Dates: start: 20210331
  26. ONDANSETRON [Concomitant]
     Active Substance: ONDANSETRON
     Indication: Feeding intolerance
     Dosage: 25 MG, QID (4X/DAY)
     Route: 065
     Dates: start: 20210329
  27. ONDANSETRON [Concomitant]
     Active Substance: ONDANSETRON
     Indication: Prophylaxis
     Dosage: 4 MG, PRN
     Route: 065
     Dates: start: 20210403
  28. CISATRACURIUM [Concomitant]
     Active Substance: CISATRACURIUM
     Indication: Sedation
     Dosage: 3 ?G/KG, CONTINUOUS/MIN
     Route: 065
     Dates: start: 20210329, end: 20210404
  29. DEXAMETHASONE [Concomitant]
     Active Substance: DEXAMETHASONE
     Indication: Product used for unknown indication
     Dosage: 4 MG, TID (3X/DAY)
     Route: 065
     Dates: start: 20210404
  30. EPINEPHRINE [Concomitant]
     Active Substance: EPINEPHRINE
     Indication: Product used for unknown indication
     Dosage: UNK
     Route: 065
  31. ROCURONIUM [Concomitant]
     Active Substance: ROCURONIUM BROMIDE
     Indication: Upper airway obstruction
     Dosage: 7 MG, PRN
     Route: 065
     Dates: start: 20210403, end: 20210404
  32. ACETAZOLAMIDE [Concomitant]
     Active Substance: ACETAZOLAMIDE
     Indication: Fistula
     Dosage: 5 MG, PRN
     Route: 065
     Dates: start: 20210403, end: 20210403
  33. ACETAZOLAMIDE [Concomitant]
     Active Substance: ACETAZOLAMIDE
     Indication: Upper airway obstruction
     Dosage: 120 MG, BID (2X/DAY)
     Route: 065
     Dates: start: 20210331, end: 20210403
  34. ACETAMINOPHEN [Concomitant]
     Active Substance: ACETAMINOPHEN
     Indication: Sedation
     Dosage: 350 MG, QID (4X/DAY)
     Route: 065
     Dates: start: 20210329
  35. ACETAMINOPHEN [Concomitant]
     Active Substance: ACETAMINOPHEN
     Indication: Analgesic therapy
     Dosage: 15 MG, PRN
     Route: 065
     Dates: start: 20210329, end: 20210404

REACTIONS (3)
  - Laryngeal obstruction [Recovered/Resolved]
  - Withdrawal syndrome [Recovered/Resolved]
  - Off label use [Unknown]

NARRATIVE: CASE EVENT DATE: 20210403
